FAERS Safety Report 11704924 (Version 1)
Quarter: 2015Q4

REPORT INFORMATION
  Report Type: Spontaneous
  Country: US (occurrence: US)
  Receive Date: 20151106
  Receipt Date: 20151106
  Transmission Date: 20160304
  Serious: No
  Sender: FDA-Public Use
  Company Number: US-BAYER-2015-462092

PATIENT
  Age: 86 Year
  Sex: Female
  Weight: 47.62 kg

DRUGS (2)
  1. MIRALAX [Suspect]
     Active Substance: POLYETHYLENE GLYCOL 3350
     Indication: CONSTIPATION
     Dosage: 0.5 DF, QD
     Route: 048
  2. BENEFIBER [Concomitant]
     Active Substance: STARCH, WHEAT
     Dosage: UNK

REACTIONS (1)
  - Underdose [Unknown]
